FAERS Safety Report 4378890-0 (Version None)
Quarter: 2004Q2

REPORT INFORMATION
  Report Type: 
  Country: None (occurrence: None)
  Receive Date: 20040616
  Receipt Date: 20040531
  Transmission Date: 20050107
  Serious: Yes (Disabling, Other)
  Sender: FDA-Public Use
  Company Number: JP-MERCK-0406USA00376

PATIENT
  Age: 55 Year
  Sex: Male

DRUGS (16)
  1. CETAPRIL [Concomitant]
     Route: 048
  2. AMLODIPINE [Concomitant]
     Route: 048
  3. CINAL [Concomitant]
     Route: 048
  4. CALCIUM CARBONATE [Concomitant]
     Route: 048
  5. CARDENALIN [Concomitant]
     Route: 048
  6. PEPCID [Suspect]
     Route: 048
     Dates: end: 20040531
  7. LASIX [Concomitant]
     Route: 048
     Dates: end: 20040531
  8. INSULIN HUMAN, ISOPHANE [Concomitant]
     Route: 058
     Dates: end: 20040601
  9. ADALAT [Concomitant]
     Route: 048
  10. BENZALIN [Concomitant]
     Route: 048
     Dates: end: 20040531
  11. CELTECT [Concomitant]
     Route: 048
  12. SEVELAMER HYDROCHLORIDE [Concomitant]
     Route: 048
  13. DOGMATYL [Concomitant]
     Route: 048
     Dates: end: 20040531
  14. ACECOL [Concomitant]
     Route: 048
  15. PANALDINE [Concomitant]
     Route: 048
  16. BASEN [Concomitant]
     Route: 048
     Dates: end: 20040601

REACTIONS (1)
  - ENCEPHALOPATHY [None]
